FAERS Safety Report 21905437 (Version 1)
Quarter: 2023Q1

REPORT INFORMATION
  Report Type: Spontaneous
  Country: TW (occurrence: TW)
  Receive Date: 20230124
  Receipt Date: 20230124
  Transmission Date: 20230418
  Serious: Yes (Life-Threatening)
  Sender: FDA-Public Use
  Company Number: TW-FreseniusKabi-FK202300906

PATIENT
  Age: 49 Year
  Sex: Female

DRUGS (11)
  1. PROPOFOL [Suspect]
     Active Substance: PROPOFOL
     Indication: Induction of anaesthesia
  2. PROPOFOL [Suspect]
     Active Substance: PROPOFOL
     Indication: Hyperventilation
  3. ROCURONIUM BROMIDE [Suspect]
     Active Substance: ROCURONIUM BROMIDE
     Indication: Induction of anaesthesia
  4. FENTANYL [Suspect]
     Active Substance: FENTANYL
     Indication: Induction of anaesthesia
  5. LIDOCAINE [Suspect]
     Active Substance: LIDOCAINE
     Indication: Induction of anaesthesia
  6. DESFLURANE [Suspect]
     Active Substance: DESFLURANE
     Indication: Maintenance of anaesthesia
  7. MORPHINE [Concomitant]
     Active Substance: MORPHINE
     Indication: Analgesic therapy
  8. MORPHINE [Concomitant]
     Active Substance: MORPHINE
     Indication: Procedural pain
  9. SUGAMMADEX [Concomitant]
     Active Substance: SUGAMMADEX
     Indication: Muscle relaxant therapy
  10. KETOROLAC [Concomitant]
     Active Substance: KETOROLAC TROMETHAMINE
     Indication: Procedural pain
  11. Midazolam [Dormicum] [Concomitant]
     Indication: Procedural pain

REACTIONS (1)
  - Hyperthermia malignant [Recovered/Resolved]
